FAERS Safety Report 16661491 (Version 3)
Quarter: 2019Q3

REPORT INFORMATION
  Report Type: Spontaneous
  Country: US (occurrence: US)
  Receive Date: 20190802
  Receipt Date: 20190905
  Transmission Date: 20191004
  Serious: Yes (Other)
  Sender: FDA-Public Use
  Company Number: US-PFIZER INC-2019329217

PATIENT
  Age: 70 Year
  Sex: Female
  Weight: 94.3 kg

DRUGS (10)
  1. HYDROCHLOROTHIAZIDE. [Concomitant]
     Active Substance: HYDROCHLOROTHIAZIDE
     Dosage: 25 MG, DAILY
     Route: 048
  2. LOSARTAN POTASSIUM. [Concomitant]
     Active Substance: LOSARTAN POTASSIUM
     Dosage: 25 MG, DAILY
     Route: 048
  3. CLONAZEPAM. [Concomitant]
     Active Substance: CLONAZEPAM
     Dosage: 1 MG, DAILY
     Route: 048
  4. PREMARIN [Suspect]
     Active Substance: ESTROGENS, CONJUGATED
     Indication: MOVEMENT DISORDER
     Dosage: 0.5 G, 2X/WEEK
     Route: 067
     Dates: start: 20181126
  5. PREMARIN [Suspect]
     Active Substance: ESTROGENS, CONJUGATED
     Indication: MUCOSAL ATROPHY
     Dosage: UNK, ALTERNATE DAY,(EVERY OTHER NIGHT)
  6. ESCITALOPRAM OXALATE. [Concomitant]
     Active Substance: ESCITALOPRAM OXALATE
     Dosage: 20 MG, DAILY
     Route: 048
  7. OMEPRAZOLE. [Concomitant]
     Active Substance: OMEPRAZOLE
     Dosage: 20 MG, DAILY
     Route: 048
  8. AMLODIPINE BESYLATE. [Concomitant]
     Active Substance: AMLODIPINE BESYLATE
     Dosage: 5 MG, DAILY
     Route: 048
  9. NITROFURANTOIN MONOHYDRATE [Concomitant]
     Active Substance: NITROFURANTOIN MONOHYDRATE
     Dosage: 100 MG, DAILY
     Route: 048
  10. LATANOPROST. [Concomitant]
     Active Substance: LATANOPROST
     Dosage: UNK
     Route: 047

REACTIONS (1)
  - Vaginal haemorrhage [Recovered/Resolved]
